FAERS Safety Report 18503885 (Version 1)
Quarter: 2020Q4

REPORT INFORMATION
  Report Type: Spontaneous
  Country: US (occurrence: US)
  Receive Date: 20201113
  Receipt Date: 20201113
  Transmission Date: 20210114
  Serious: Yes (Death, Other)
  Sender: FDA-Public Use
  Company Number: US-PURDUE-USA-2020-0173496

PATIENT
  Sex: Female

DRUGS (2)
  1. OXYCONTIN [Suspect]
     Active Substance: OXYCODONE HYDROCHLORIDE
     Indication: FINGER AMPUTATION
  2. OXYCONTIN [Suspect]
     Active Substance: OXYCODONE HYDROCHLORIDE
     Indication: ACCIDENT
     Dosage: 10 MG, Q8H
     Route: 048

REACTIONS (5)
  - Death [Fatal]
  - Colectomy [Unknown]
  - Appendix cancer [Unknown]
  - Illness [Unknown]
  - Appendicitis perforated [Unknown]

NARRATIVE: CASE EVENT DATE: 20161031
